FAERS Safety Report 18761903 (Version 2)
Quarter: 2022Q2

REPORT INFORMATION
  Report Type: Spontaneous
  Country: US (occurrence: US)
  Receive Date: 20210120
  Receipt Date: 20220412
  Transmission Date: 20220721
  Serious: Yes (Other)
  Sender: FDA-Public Use
  Company Number: US-GLAXOSMITHKLINE-US2021GSK012332

PATIENT
  Sex: Male

DRUGS (8)
  1. RANITIDINE [Suspect]
     Active Substance: RANITIDINE
     Indication: Abdominal discomfort
     Dosage: UNKNOWN AT THIS TIME BOTH
     Route: 065
     Dates: start: 200703, end: 201802
  2. RANITIDINE [Suspect]
     Active Substance: RANITIDINE
     Dosage: UNK, U
     Route: 065
     Dates: start: 200703, end: 201802
  3. RANITIDINE [Suspect]
     Active Substance: RANITIDINE
     Indication: Abdominal discomfort
     Dosage: UNKNOWN AT THIS TIME BOTH
     Route: 065
     Dates: start: 200703, end: 201802
  4. RANITIDINE [Suspect]
     Active Substance: RANITIDINE
     Dosage: UNK, U
     Route: 065
     Dates: start: 200703, end: 201802
  5. RANITIDINE [Suspect]
     Active Substance: RANITIDINE
     Indication: Abdominal discomfort
     Dosage: UNKNOWN AT THIS TIME BOTH
     Route: 065
     Dates: start: 200703, end: 201802
  6. RANITIDINE [Suspect]
     Active Substance: RANITIDINE
     Dosage: UNK, U
     Route: 065
     Dates: start: 200703, end: 201802
  7. RANITIDINE [Suspect]
     Active Substance: RANITIDINE
     Indication: Abdominal discomfort
     Dosage: UNKNOWN AT THIS TIME BOTH
     Route: 065
     Dates: start: 200703, end: 201802
  8. RANITIDINE [Suspect]
     Active Substance: RANITIDINE
     Dosage: UNK, U
     Route: 065
     Dates: start: 200703, end: 201802

REACTIONS (1)
  - Colorectal cancer [Unknown]
